FAERS Safety Report 9826000 (Version 2)
Quarter: 2014Q2

REPORT INFORMATION
  Report Type: Spontaneous
  Country: AT (occurrence: AT)
  Receive Date: 20140117
  Receipt Date: 20140409
  Transmission Date: 20141212
  Serious: Yes (Hospitalization)
  Sender: FDA-Public Use
  Company Number: AT-BAYER-2014-007017

PATIENT
  Sex: Male

DRUGS (1)
  1. XOFIGO [Suspect]

REACTIONS (1)
  - Pneumonia [None]
